FAERS Safety Report 6763207-4 (Version None)
Quarter: 2010Q2

REPORT INFORMATION
  Report Type: 
  Country: None (occurrence: None)
  Receive Date: 20100609
  Receipt Date: 20100601
  Transmission Date: 20101027
  Serious: Yes (Other)
  Sender: FDA-Public Use
  Company Number: US-MERCK-0903USA01169

PATIENT
  Age: 68 Year
  Sex: Female

DRUGS (14)
  1. FOSAMAX [Suspect]
     Indication: OSTEOPENIA
     Route: 048
  2. FOSAMAX [Suspect]
     Route: 048
     Dates: start: 20060819
  3. FOSAMAX [Suspect]
     Indication: OSTEOPOROSIS
     Route: 048
  4. FOSAMAX [Suspect]
     Route: 048
     Dates: start: 20060819
  5. CALCIUM (UNSPECIFIED) [Concomitant]
     Route: 065
  6. KLONOPIN [Concomitant]
     Route: 065
  7. CYMBALTA [Concomitant]
     Route: 065
  8. FENTANYL [Concomitant]
     Route: 065
  9. HYDROCODONE [Concomitant]
     Route: 065
  10. GENTEAL [Concomitant]
     Route: 047
  11. IRON (UNSPECIFIED) [Concomitant]
     Route: 065
  12. RITALIN [Concomitant]
     Route: 065
  13. MIRAPEX [Concomitant]
     Route: 065
  14. VITAMIN D (UNSPECIFIED) [Concomitant]
     Route: 065

REACTIONS (19)
  - ARTHRITIS [None]
  - BONE PAIN [None]
  - DRY SKIN [None]
  - FALL [None]
  - GINGIVAL DISORDER [None]
  - HAEMATEMESIS [None]
  - INFECTION [None]
  - LOOSE TOOTH [None]
  - MUSCLE SPASMS [None]
  - MUSCULAR WEAKNESS [None]
  - MYALGIA [None]
  - OSTEOMYELITIS [None]
  - PARAESTHESIA [None]
  - RASH MACULAR [None]
  - ROTATOR CUFF SYNDROME [None]
  - SWELLING FACE [None]
  - TOOTH ABSCESS [None]
  - TOOTH DISORDER [None]
  - TOOTH LOSS [None]
